FAERS Safety Report 11687200 (Version 4)
Quarter: 2016Q1

REPORT INFORMATION
  Report Type: Report from Study
  Country: PR (occurrence: PR)
  Receive Date: 20151030
  Receipt Date: 20160120
  Transmission Date: 20160525
  Serious: Yes (Other)
  Sender: FDA-Public Use
  Company Number: PR-ABBVIE-15K-131-1441020-00

PATIENT
  Age: 48 Year
  Sex: Female
  Weight: 56.3 kg

DRUGS (21)
  1. ESCITALOPRAM [Concomitant]
     Active Substance: ESCITALOPRAM OXALATE
     Indication: DEPRESSION
     Route: 048
     Dates: start: 2012
  2. BENAZEPRIL [Concomitant]
     Active Substance: BENAZEPRIL HYDROCHLORIDE
     Indication: HYPERTENSION
     Dosage: 2-20 MG
     Dates: start: 2015
  3. BUPROPION. [Concomitant]
     Active Substance: BUPROPION
     Indication: DEPRESSION
     Route: 048
     Dates: start: 2014
  4. HUMIRA [Suspect]
     Active Substance: ADALIMUMAB
     Indication: RHEUMATOID ARTHRITIS
     Route: 058
     Dates: start: 201502, end: 201509
  5. SULFASALAZINE. [Concomitant]
     Active Substance: SULFASALAZINE
     Indication: RHEUMATOID ARTHRITIS
     Route: 048
     Dates: start: 2004
  6. ALPRAZOLAM. [Concomitant]
     Active Substance: ALPRAZOLAM
     Indication: DEPRESSION
     Route: 048
     Dates: start: 2014
  7. MEDROL [Concomitant]
     Active Substance: METHYLPREDNISOLONE
     Indication: INFLAMMATION
     Route: 048
     Dates: start: 200410, end: 201509
  8. MEDROL [Concomitant]
     Active Substance: METHYLPREDNISOLONE
     Route: 048
     Dates: start: 20151020
  9. ZANAFLEX [Concomitant]
     Active Substance: TIZANIDINE HYDROCHLORIDE
     Indication: PRODUCT USED FOR UNKNOWN INDICATION
  10. VITAMIN D3 [Concomitant]
     Active Substance: CHOLECALCIFEROL
     Indication: PRODUCT USED FOR UNKNOWN INDICATION
     Route: 048
     Dates: start: 2004
  11. MEDROL [Concomitant]
     Active Substance: METHYLPREDNISOLONE
     Indication: RHEUMATOID ARTHRITIS
     Dates: start: 2004, end: 2004
  12. TIZANIDINE. [Concomitant]
     Active Substance: TIZANIDINE
     Indication: INFLAMMATION
     Route: 048
     Dates: start: 2004
  13. ENALAPRIL [Concomitant]
     Active Substance: ENALAPRIL
     Indication: PRODUCT USED FOR UNKNOWN INDICATION
  14. XANAX [Concomitant]
     Active Substance: ALPRAZOLAM
     Indication: PRODUCT USED FOR UNKNOWN INDICATION
  15. AMLODIPINE BESYLATE AND BENAZEPRIL HYDROCHL. [Concomitant]
     Indication: HYPERTENSION
     Dosage: 5 MG/ 20 MG
     Route: 048
     Dates: start: 201505
  16. AMLODIPINE [Concomitant]
     Active Substance: AMLODIPINE BESYLATE
     Indication: HYPERTENSION
     Route: 048
     Dates: start: 2010
  17. TIZANIDINE. [Concomitant]
     Active Substance: TIZANIDINE
     Indication: RHEUMATOID ARTHRITIS
     Route: 048
  18. SULFASALAZINE. [Concomitant]
     Active Substance: SULFASALAZINE
     Indication: GASTRIC DISORDER
     Route: 048
     Dates: start: 2012
  19. SULFASALAZINE. [Concomitant]
     Active Substance: SULFASALAZINE
     Route: 048
     Dates: start: 2013
  20. ESTAZOLAM. [Concomitant]
     Active Substance: ESTAZOLAM
     Indication: DEPRESSION
     Route: 048
     Dates: start: 2014
  21. CITALOPRAM HYDROBROMIDE. [Concomitant]
     Active Substance: CITALOPRAM HYDROBROMIDE
     Indication: DEPRESSION
     Route: 048
     Dates: start: 2014

REACTIONS (13)
  - White blood cell count increased [Unknown]
  - Depression [Not Recovered/Not Resolved]
  - Arthritis [Not Recovered/Not Resolved]
  - Migraine [Recovered/Resolved]
  - Ligament disorder [Recovering/Resolving]
  - Arthralgia [Not Recovered/Not Resolved]
  - Tendonitis [Recovering/Resolving]
  - Chills [Recovered/Resolved]
  - Meniscus injury [Recovering/Resolving]
  - Diarrhoea [Recovered/Resolved]
  - Gait disturbance [Not Recovered/Not Resolved]
  - White blood cell count increased [Unknown]
  - Joint effusion [Recovering/Resolving]

NARRATIVE: CASE EVENT DATE: 201507
